FAERS Safety Report 12854373 (Version 1)
Quarter: 2016Q4

REPORT INFORMATION
  Report Type: Spontaneous
  Country: US (occurrence: US)
  Receive Date: 20161017
  Receipt Date: 20161017
  Transmission Date: 20170207
  Serious: No
  Sender: FDA-Public Use
  Company Number: US-GALDERMA-US16005141

PATIENT
  Age: 76 Year
  Sex: Female

DRUGS (5)
  1. SOOLANTRA [Suspect]
     Active Substance: IVERMECTIN
     Indication: RASH
     Dosage: 1%
     Route: 061
     Dates: start: 20160705, end: 20160725
  2. LEXAPRO [Concomitant]
     Active Substance: ESCITALOPRAM OXALATE
     Dosage: 20 MG
     Route: 048
  3. CHANEL MOISTURIZER [Concomitant]
     Indication: DRY SKIN PROPHYLAXIS
     Route: 061
  4. SOOLANTRA [Suspect]
     Active Substance: IVERMECTIN
     Indication: ROSACEA
  5. ALBOLENE CLEANSER [Concomitant]
     Indication: THERAPEUTIC SKIN CARE TOPICAL
     Route: 061

REACTIONS (4)
  - Condition aggravated [Recovered/Resolved]
  - Drug ineffective [Recovered/Resolved]
  - Pruritus [Recovered/Resolved]
  - Product use issue [Recovered/Resolved]

NARRATIVE: CASE EVENT DATE: 20160725
